FAERS Safety Report 9252939 (Version 1)
Quarter: 2013Q2

REPORT INFORMATION
  Report Type: Report from Study
  Country: US (occurrence: US)
  Receive Date: 20130424
  Receipt Date: 20130424
  Transmission Date: 20140414
  Serious: Yes (Hospitalization, Other)
  Sender: FDA-Public Use
  Company Number: US-009507513-1304USA000582

PATIENT
  Age: 68 Year
  Sex: Male
  Weight: 71.4 kg

DRUGS (9)
  1. DEXAMETHASONE [Suspect]
     Indication: PLASMA CELL MYELOMA
     Dosage: 20 MG, ON DAYS 1,2,4,5,8,9,11,12 EVERY 21 DAYS
     Route: 048
     Dates: start: 20130107, end: 20130315
  2. BORTEZOMIB [Suspect]
     Indication: PLASMA CELL MYELOMA
     Dosage: 1.3 MG/M2, ON DAYS 1,4,8,11 EVERY 21 DAYS
     Route: 058
     Dates: start: 20130107, end: 20130311
  3. BORTEZOMIB [Suspect]
     Dosage: 1.3 MG/M2, ON DAYS 1,4,8,11 EVERY 21 DAYS
     Route: 058
     Dates: start: 20130401
  4. BACTRIM [Concomitant]
     Dosage: UNK
     Dates: start: 20120215
  5. VALACYCLOVIR HYDROCHLORIDE [Concomitant]
     Dosage: UNK
     Dates: start: 20120203
  6. OXYCODONE [Concomitant]
     Dosage: UNK
     Dates: start: 20100530
  7. ASPIRIN [Concomitant]
     Dosage: UNK
     Dates: start: 201301
  8. PROVENTIL [Concomitant]
     Indication: RESPIRATORY TRACT INFECTION
     Dosage: UNK
     Dates: start: 20130227
  9. PROMETHAZINE [Concomitant]
     Indication: RESPIRATORY TRACT INFECTION
     Dosage: UNK
     Dates: start: 20130227

REACTIONS (2)
  - Atrial fibrillation [Recovered/Resolved]
  - Pneumonia haemophilus [Recovered/Resolved]
